FAERS Safety Report 6744543-4 (Version None)
Quarter: 2010Q2

REPORT INFORMATION
  Report Type: 
  Country: None (occurrence: None)
  Receive Date: 20100527
  Receipt Date: 20100519
  Transmission Date: 20101027
  Serious: Yes (Hospitalization)
  Sender: FDA-Public Use
  Company Number: GB-ELI_LILLY_AND_COMPANY-GB201005004870

PATIENT
  Sex: Male
  Weight: 108 kg

DRUGS (4)
  1. BYETTA [Suspect]
     Indication: TYPE 2 DIABETES MELLITUS
     Dosage: 5 MG, 2/1 DAYS
     Route: 058
     Dates: start: 20100226, end: 20100424
  2. BISOPROLOL [Concomitant]
     Indication: ATRIAL FIBRILLATION
     Dosage: 10 MG, UNKNOWN
     Route: 048
  3. RAMIPRIL [Concomitant]
     Indication: HYPERTENSION
     Dosage: 5 MG, UNKNOWN
     Route: 048
  4. WARFARIN SODIUM [Concomitant]
     Indication: ATRIAL FIBRILLATION
     Dosage: UNK, UNKNOWN
     Route: 048

REACTIONS (1)
  - PANCREATITIS ACUTE [None]
